FAERS Safety Report 7104309-2 (Version None)
Quarter: 2010Q4

REPORT INFORMATION
  Report Type: 
  Country: None (occurrence: None)
  Receive Date: 20101115
  Receipt Date: 20101108
  Transmission Date: 20110411
  Serious: Yes (Death)
  Sender: FDA-Public Use
  Company Number: CHPA2010US17540

PATIENT
  Sex: Female

DRUGS (2)
  1. EXCEDRIN (MIGRAINE) [Suspect]
     Dosage: UNK , UNK
  2. ALCOHOL [Suspect]

REACTIONS (4)
  - DRUG LEVEL INCREASED [None]
  - HOMICIDE [None]
  - VICTIM OF HOMICIDE [None]
  - WRONG TECHNIQUE IN DRUG USAGE PROCESS [None]
